FAERS Safety Report 8784345 (Version 1)
Quarter: 2012Q4

REPORT INFORMATION
  Report Type: Report from Study
  Country: IE (occurrence: IE)
  Receive Date: 20120913
  Receipt Date: 20120913
  Transmission Date: 20130627
  Serious: Yes (Hospitalization)
  Sender: FDA-Public Use
  Company Number: IE-PFIZER INC-2012223613

PATIENT
  Age: 72 Year
  Sex: Female
  Weight: 122 kg

DRUGS (18)
  1. LIPITOR [Suspect]
     Indication: PRODUCT USED FOR UNKNOWN INDICATION
     Dosage: 80 mg, daily
     Route: 065
     Dates: start: 20090519
  2. GLUCOPHAGE [Suspect]
     Dosage: 1 g, UNK
     Route: 065
     Dates: start: 2007
  3. WARFARIN [Suspect]
     Indication: PRODUCT USED FOR UNKNOWN INDICATION
     Dosage: TDD ILLEGIBLE
     Route: 065
     Dates: start: 20090508
  4. ACETYLSALICYLIC ACID [Suspect]
     Indication: PRODUCT USED FOR UNKNOWN INDICATION
     Dosage: 40 mg, daily
     Route: 065
     Dates: start: 20000224
  5. SINGULAIR [Suspect]
     Indication: PRODUCT USED FOR UNKNOWN INDICATION
     Dosage: 10 mg, daily
     Route: 065
     Dates: start: 20090911
  6. SERETIDE [Suspect]
     Indication: PRODUCT USED FOR UNKNOWN INDICATION
     Dosage: 500 ug, UNK
     Route: 065
     Dates: start: 20090911
  7. SOTALOL [Suspect]
     Indication: PRODUCT USED FOR UNKNOWN INDICATION
     Dosage: 120 ug, daily
     Route: 065
     Dates: start: 20090930
  8. SPIRIVA [Concomitant]
     Dosage: 18 ug, UNK
     Dates: start: 2002
  9. SPIRIVA [Concomitant]
     Dosage: 20 ug, UNK
     Dates: start: 2002
  10. ELTROXIN [Concomitant]
     Dosage: 75 mg, UNK
     Dates: start: 2008
  11. FRUSEMIDE [Concomitant]
     Dosage: 40 mg, UNK
     Dates: start: 20090224
  12. PAROXETINE [Concomitant]
     Dosage: 30 mg, UNK
     Dates: start: 200910
  13. MEPTAZINOL [Concomitant]
     Dosage: 60 mg, UNK
     Dates: start: 200910
  14. PREGABALIN [Concomitant]
     Dosage: 150 mg, UNK
     Dates: start: 20050725
  15. CALCICHEW [Concomitant]
     Dosage: UNK
     Dates: start: 20091008
  16. ORLISTAT [Concomitant]
     Dosage: 120 mg, UNK
     Dates: start: 20070225
  17. L-THYROXIN [Concomitant]
     Dosage: 80 mg, UNK
     Dates: start: 2008
  18. OMEPRAZOLE [Concomitant]
     Dosage: 40 mg, UNK
     Dates: start: 2008

REACTIONS (2)
  - Ankle fracture [Recovering/Resolving]
  - Fracture displacement [Recovering/Resolving]
